FAERS Safety Report 20565424 (Version 1)
Quarter: 2022Q1

REPORT INFORMATION
  Report Type: Spontaneous
  Country: US (occurrence: US)
  Receive Date: 20220308
  Receipt Date: 20220308
  Transmission Date: 20220424
  Serious: No
  Sender: FDA-Public Use
  Company Number: US-KYOWAKIRIN-2022BKK002978

PATIENT

DRUGS (1)
  1. NOURIANZ [Suspect]
     Active Substance: ISTRADEFYLLINE
     Indication: Orthostatic hypotension
     Dosage: 40 MG, EVERY MORNING
     Route: 048
     Dates: start: 202201

REACTIONS (2)
  - Arthritis [Not Recovered/Not Resolved]
  - Product use in unapproved indication [Not Recovered/Not Resolved]

NARRATIVE: CASE EVENT DATE: 20220101
